FAERS Safety Report 4902749-0 (Version None)
Quarter: 2006Q1

REPORT INFORMATION
  Report Type: 
  Country: None (occurrence: None)
  Receive Date: 20060207
  Receipt Date: 20060131
  Transmission Date: 20060701
  Serious: Yes (Life-Threatening)
  Sender: FDA-Public Use
  Company Number: PL-MERCK-0601POL00009

PATIENT
  Age: 48 Year
  Sex: Female
  Weight: 55 kg

DRUGS (2)
  1. SINGULAIR [Suspect]
     Indication: ASTHMA
     Route: 048
     Dates: start: 20060116, end: 20060116
  2. TRANDOLAPRIL [Concomitant]
     Indication: HYPERTENSION
     Route: 065

REACTIONS (1)
  - DYSPNOEA [None]
